FAERS Safety Report 24579045 (Version 2)
Quarter: 2024Q4

REPORT INFORMATION
  Report Type: Report from Study
  Country: IT (occurrence: IT)
  Receive Date: 20241105
  Receipt Date: 20241205
  Transmission Date: 20250115
  Serious: Yes (Other)
  Sender: TAKEDA
  Company Number: IT-TAKEDA-2024TUS110184

PATIENT
  Sex: Male

DRUGS (3)
  1. ADVATE [Suspect]
     Active Substance: ANTIHEMOPHILIC FACTOR, HUMAN RECOMBINANT
     Indication: Haemophilia
     Dosage: 3000 INTERNATIONAL UNIT, 3/WEEK
  2. ADVATE [Suspect]
     Active Substance: ANTIHEMOPHILIC FACTOR, HUMAN RECOMBINANT
  3. ADVATE [Suspect]
     Active Substance: ANTIHEMOPHILIC FACTOR, HUMAN RECOMBINANT

REACTIONS (4)
  - Bone operation [Not Recovered/Not Resolved]
  - Arthropathy [Not Recovered/Not Resolved]
  - Ulcer [Not Recovered/Not Resolved]
  - Postoperative wound infection [Not Recovered/Not Resolved]
